FAERS Safety Report 20476958 (Version 1)
Quarter: 2022Q1

REPORT INFORMATION
  Report Type: Spontaneous
  Country: JP (occurrence: JP)
  Receive Date: 20220215
  Receipt Date: 20220215
  Transmission Date: 20220423
  Serious: Yes (Death, Other)
  Sender: FDA-Public Use
  Company Number: JP-SA-SAC20220214001010

PATIENT
  Age: 81 Year
  Sex: Female

DRUGS (4)
  1. RIFADIN [Suspect]
     Active Substance: RIFAMPIN
     Indication: Japanese spotted fever
     Dosage: 150 MG
  2. LEVOFLOXACIN [Suspect]
     Active Substance: LEVOFLOXACIN
     Indication: Japanese spotted fever
     Dosage: UNK
  3. AZITHROMYCIN DIHYDROCHLORIDE [Concomitant]
     Active Substance: AZITHROMYCIN DIHYDROCHLORIDE
     Dosage: UNK
  4. MINOCYCLINE [Concomitant]
     Active Substance: MINOCYCLINE HYDROCHLORIDE

REACTIONS (2)
  - Gastrointestinal haemorrhage [Fatal]
  - Gastric ulcer [Unknown]
